FAERS Safety Report 16959043 (Version 4)
Quarter: 2021Q1

REPORT INFORMATION
  Report Type: Report from Study
  Country: CA (occurrence: CA)
  Receive Date: 20191024
  Receipt Date: 20210302
  Transmission Date: 20210419
  Serious: Yes (Hospitalization, Other)
  Sender: FDA-Public Use
  Company Number: CA-NALPROPION PHARMACEUTICALS INC.-2019-007889

PATIENT

DRUGS (6)
  1. CONTRAVE [Suspect]
     Active Substance: BUPROPION HYDROCHLORIDE\NALTREXONE HYDROCHLORIDE
     Dosage: 90/8 MG, FROM APPROXIMATELY 21/JUL/2019 TO APPROXIMATELY 03/AUG/2019, 2 TABLETS AM, 1 TABLET PM
     Route: 048
     Dates: start: 201907, end: 201908
  2. CONTRAVE [Suspect]
     Active Substance: BUPROPION HYDROCHLORIDE\NALTREXONE HYDROCHLORIDE
     Dosage: 90/8 MG, APPROXIMATELY 07/JUL/2019 TO APPROXIMATELY 20/JUL/2019, ONE TABLET IN AM, ONE TABLET IN PM
     Route: 048
     Dates: start: 201907, end: 201907
  3. CONTRAVE [Suspect]
     Active Substance: BUPROPION HYDROCHLORIDE\NALTREXONE HYDROCHLORIDE
     Dosage: 90/8 MG, TWO TABLETS IN MORNING, TWO TABLETS IN EVENING
     Route: 048
     Dates: start: 20190804, end: 20191001
  4. CONTRAVE [Suspect]
     Active Substance: BUPROPION HYDROCHLORIDE\NALTREXONE HYDROCHLORIDE
     Indication: WEIGHT CONTROL
     Dosage: 90/8 MG, FROM APPROXIMATELY 23/JUN/2019 TO APPROXIMATELY 06/JUL/2019, ONE TABLET IN MORNING
     Route: 048
     Dates: start: 201906, end: 201907
  5. CONTRAVE [Suspect]
     Active Substance: BUPROPION HYDROCHLORIDE\NALTREXONE HYDROCHLORIDE
     Dosage: 90/8 MG, SECOND ATTEMPT, ONE TABLET IN MORNING AND ONE TABLET IN EVENING
     Route: 048
     Dates: start: 20191207, end: 20191213
  6. CONTRAVE [Suspect]
     Active Substance: BUPROPION HYDROCHLORIDE\NALTREXONE HYDROCHLORIDE
     Dosage: 90/8 MG, SECOND ATTEMPT, TWO TABLETS IN MORNING AND TWO TABLETS IN EVENING
     Route: 048
     Dates: start: 20191214

REACTIONS (7)
  - Protein total decreased [Unknown]
  - Hypersomnia [Unknown]
  - Dry mouth [Not Recovered/Not Resolved]
  - Hernia [Unknown]
  - Intentional product use issue [Unknown]
  - Hospitalisation [Not Recovered/Not Resolved]
  - Drug titration error [Unknown]

NARRATIVE: CASE EVENT DATE: 2019
